FAERS Safety Report 7637110-1 (Version None)
Quarter: 2011Q3

REPORT INFORMATION
  Report Type: 
  Country: None (occurrence: None)
  Receive Date: 20110726
  Receipt Date: 20110707
  Transmission Date: 20111222
  Serious: No
  Sender: FDA-Public Use
  Company Number: US-B.I. PHARMACEUTICALS,INC./RIDGEFIELD-2011-BP-17344BP

PATIENT
  Sex: Male

DRUGS (5)
  1. SINGULAIR [Concomitant]
     Indication: ASTHMA
     Dosage: 10 MG
     Route: 048
     Dates: start: 20010101
  2. LISINOPRIL [Concomitant]
     Indication: HYPERTENSION
     Dosage: 10 MG
     Route: 048
     Dates: start: 20110601
  3. PROVENTIL [Concomitant]
     Indication: ASTHMA
     Route: 055
     Dates: start: 19740101
  4. CATAPRES-TTS-1 [Suspect]
     Indication: HYPERTENSION
     Dosage: 0.3 MG
     Route: 062
     Dates: start: 20110601
  5. ATIVAN [Concomitant]
     Indication: ANXIETY
     Route: 048
     Dates: start: 20010101

REACTIONS (2)
  - PNEUMONIA [None]
  - APPLICATION SITE IRRITATION [None]
